FAERS Safety Report 6342242-4 (Version None)
Quarter: 2009Q3

REPORT INFORMATION
  Report Type: 
  Country: None (occurrence: None)
  Receive Date: 20090903
  Receipt Date: 20090903
  Transmission Date: 20100115
  Serious: Yes (Hospitalization)
  Sender: FDA-Public Use
  Company Number: None

PATIENT
  Age: 34 Year
  Sex: Male
  Weight: 64.5 kg

DRUGS (14)
  1. TYGACIL [Suspect]
     Indication: BRONCHITIS BACTERIAL
     Dosage: 50 MG TWICE DAILY INTRAVENOUS
     Route: 042
     Dates: start: 20090804, end: 20090819
  2. TYGACIL [Suspect]
     Indication: STAPHYLOCOCCAL INFECTION
     Dosage: 50 MG TWICE DAILY INTRAVENOUS
     Route: 042
     Dates: start: 20090804, end: 20090819
  3. ALBUTEROL [Concomitant]
  4. COMBIVENT [Concomitant]
  5. ALUMINUYM HDROXIDE ORAL SUSPENTION [Concomitant]
  6. AQUAADEKS CAPSULES [Concomitant]
  7. CETIRIZINE HCL [Concomitant]
  8. CLARITHROMYCIN [Concomitant]
  9. CREON 24 DR [Concomitant]
  10. DORNASE ALFA NEBULIZER [Concomitant]
  11. ENALAPRIL MALEATE [Concomitant]
  12. ADVAIR HFA [Concomitant]
  13. MEROPENEM [Concomitant]
  14. OXYCODONE ELIXIR [Concomitant]

REACTIONS (7)
  - DRUG HYPERSENSITIVITY [None]
  - HEPATOSPLENOMEGALY [None]
  - HYPOALBUMINAEMIA [None]
  - INFECTION [None]
  - LYMPHADENITIS [None]
  - OEDEMA [None]
  - OROPHARYNGEAL PAIN [None]
